FAERS Safety Report 4848955-5 (Version None)
Quarter: 2005Q4

REPORT INFORMATION
  Report Type: 
  Country: None (occurrence: None)
  Receive Date: 20051208
  Receipt Date: 20051201
  Transmission Date: 20060501
  Serious: Yes (Hospitalization)
  Sender: FDA-Public Use
  Company Number: US-MERCK-0512USA00349

PATIENT
  Age: 80 Year
  Sex: Male
  Weight: 72 kg

DRUGS (14)
  1. AMOXICILLIN [Concomitant]
     Route: 065
  2. CHLORHEXIDINE ACETATE [Concomitant]
     Route: 065
  3. LOPRESSOR [Concomitant]
     Route: 065
  4. LISINOPRIL [Concomitant]
     Route: 065
  5. ECOTRIN [Concomitant]
     Route: 065
  6. HYDROCHLOROTHIAZIDE [Concomitant]
     Route: 048
  7. PLAVIX [Concomitant]
     Route: 065
  8. VIOXX [Suspect]
     Indication: TOOTHACHE
     Route: 048
     Dates: start: 20000919, end: 20040501
  9. METOPROLOL [Concomitant]
     Route: 065
  10. NIFEDIPINE [Concomitant]
     Route: 065
  11. LORATADINE [Concomitant]
     Route: 065
  12. PROSCAR [Concomitant]
     Route: 065
  13. CIPRO [Concomitant]
     Route: 065
  14. HYDROCODONE BITARTRATE [Concomitant]
     Route: 065

REACTIONS (16)
  - AORTIC ARTERIOSCLEROSIS [None]
  - AORTIC VALVE INCOMPETENCE [None]
  - BLOOD PRESSURE INCREASED [None]
  - CARDIAC ANEURYSM [None]
  - CATARACT [None]
  - CONDITION AGGRAVATED [None]
  - CORONARY ARTERY DISEASE [None]
  - DILATATION ATRIAL [None]
  - LOSS OF CONSCIOUSNESS [None]
  - MYOCARDIAL INFARCTION [None]
  - NEPHROLITHIASIS [None]
  - PENILE PROSTHESIS INSERTION [None]
  - PENIS DISORDER [None]
  - RENAL CYST [None]
  - SYNCOPE VASOVAGAL [None]
  - VENTRICULAR HYPERTROPHY [None]
